FAERS Safety Report 13177959 (Version 1)
Quarter: 2017Q1

REPORT INFORMATION
  Report Type: Spontaneous
  Country: US (occurrence: US)
  Receive Date: 20170201
  Receipt Date: 20170201
  Transmission Date: 20170509
  Serious: Yes (Hospitalization)
  Sender: FDA-Public Use
  Company Number: None

PATIENT
  Age: 80 Year
  Sex: Female
  Weight: 81.8 kg

DRUGS (2)
  1. BACLOFEN. [Suspect]
     Active Substance: BACLOFEN
     Indication: PAIN
     Dates: start: 20160225, end: 20160826
  2. MORPHINE [Suspect]
     Active Substance: MORPHINE
     Indication: PAIN
     Dates: start: 20110421, end: 20160826

REACTIONS (3)
  - Mental status changes [None]
  - Partial seizures [None]
  - Fall [None]

NARRATIVE: CASE EVENT DATE: 20160826
